FAERS Safety Report 16674001 (Version 8)
Quarter: 2019Q3

REPORT INFORMATION
  Report Type: Spontaneous
  Country: US (occurrence: US)
  Receive Date: 20190806
  Receipt Date: 20190930
  Transmission Date: 20191004
  Serious: Yes (Hospitalization)
  Sender: FDA-Public Use
  Company Number: US-ACTELION-A-NJ2019-193858

PATIENT
  Age: 53 Year
  Sex: Female
  Weight: 93.88 kg

DRUGS (21)
  1. OPSUMIT [Suspect]
     Active Substance: MACITENTAN
     Dosage: UNK
     Route: 048
     Dates: start: 20190708
  2. NIFEDIPINE. [Concomitant]
     Active Substance: NIFEDIPINE
  3. CYANOCOBALAMIN. [Concomitant]
     Active Substance: CYANOCOBALAMIN
  4. METOLAZONE. [Concomitant]
     Active Substance: METOLAZONE
  5. VELETRI [Suspect]
     Active Substance: EPOPROSTENOL
     Indication: PULMONARY HYPERTENSION
     Dosage: 28 NG/KG, PER MIN
     Route: 042
  6. OPSUMIT [Suspect]
     Active Substance: MACITENTAN
     Dosage: UNK
     Route: 048
     Dates: start: 20190712, end: 20190904
  7. POTASSIUM CHLORIDE. [Concomitant]
     Active Substance: POTASSIUM CHLORIDE
  8. CYTOMEL [Concomitant]
     Active Substance: LIOTHYRONINE SODIUM
     Dosage: UNK
     Dates: start: 20190816
  9. ADEMPAS [Concomitant]
     Active Substance: RIOCIGUAT
  10. ESOMEPRAZOLE MAGNESIUM. [Concomitant]
     Active Substance: ESOMEPRAZOLE MAGNESIUM
  11. SPIRONOLACTONE. [Concomitant]
     Active Substance: SPIRONOLACTONE
  12. PREDNISONE. [Concomitant]
     Active Substance: PREDNISONE
  13. TORSEMIDE. [Concomitant]
     Active Substance: TORSEMIDE
  14. MYCOPHENOLATE [Concomitant]
     Active Substance: MYCOPHENOLIC ACID
  15. MUPIROCIN. [Concomitant]
     Active Substance: MUPIROCIN
  16. ASTELIN [Concomitant]
     Active Substance: AZELASTINE HYDROCHLORIDE
     Dosage: UNK
     Dates: start: 20190816
  17. OPSUMIT [Suspect]
     Active Substance: MACITENTAN
     Indication: PULMONARY HYPERTENSION
     Dosage: 10 MG, QD
     Route: 048
     Dates: start: 20190613
  18. LEVOTHYROXIN [Concomitant]
     Active Substance: LEVOTHYROXINE
  19. TRAMADOL. [Concomitant]
     Active Substance: TRAMADOL
  20. OXYGEN. [Concomitant]
     Active Substance: OXYGEN
  21. VITAMIN D [Concomitant]
     Active Substance: VITAMIN D NOS

REACTIONS (21)
  - Dizziness [Not Recovered/Not Resolved]
  - Vomiting [Unknown]
  - Underdose [Unknown]
  - Asthenia [Not Recovered/Not Resolved]
  - Haemoglobin decreased [Unknown]
  - Adverse event [Unknown]
  - Blood creatinine increased [Unknown]
  - Abdominal discomfort [Unknown]
  - Fluid retention [Unknown]
  - Anaemia [Unknown]
  - Oedema peripheral [Not Recovered/Not Resolved]
  - Device dislocation [Unknown]
  - Fluid overload [Not Recovered/Not Resolved]
  - Pleural effusion [Not Recovered/Not Resolved]
  - Device malfunction [Not Recovered/Not Resolved]
  - Weight increased [Unknown]
  - Palpitations [Not Recovered/Not Resolved]
  - Blood urea increased [Unknown]
  - Fall [Unknown]
  - Foot fracture [Unknown]
  - Dyspnoea [Unknown]

NARRATIVE: CASE EVENT DATE: 20190710
